FAERS Safety Report 6679386-3 (Version None)
Quarter: 2010Q2

REPORT INFORMATION
  Report Type: 
  Country: None (occurrence: None)
  Receive Date: 20100408
  Receipt Date: 20090629
  Transmission Date: 20101027
  Serious: No
  Sender: FDA-Public Use
  Company Number: 2009-00543

PATIENT
  Age: 49 Year
  Sex: Male
  Weight: 79.3795 kg

DRUGS (3)
  1. ZICAM COLD REMEDY GEL SWABS [Suspect]
     Dosage: SPORADIC 1 1/2 YEARS
  2. ZICAM COLD REMEDY NASAL GEL [Suspect]
  3. ZYRTEC-D 12 HOUR [Concomitant]

REACTIONS (1)
  - ANOSMIA [None]
